FAERS Safety Report 18275332 (Version 2)
Quarter: 2020Q4

REPORT INFORMATION
  Report Type: Spontaneous
  Country: US (occurrence: US)
  Receive Date: 20200916
  Receipt Date: 20201125
  Transmission Date: 20210113
  Serious: Yes (Other)
  Sender: FDA-Public Use
  Company Number: US-DSJP-DSU-2020-126671

PATIENT
  Sex: Female

DRUGS (4)
  1. METOPROLOL SUCCINATE. [Concomitant]
     Active Substance: METOPROLOL SUCCINATE
     Indication: ATRIAL TACHYCARDIA
     Dosage: 25 MG, QD
     Route: 048
  2. ENHERTU [Suspect]
     Active Substance: FAM-TRASTUZUMAB DERUXTECAN-NXKI
     Indication: BREAST CANCER METASTATIC
     Dosage: UNK UNK, ONCE EVERY 3 WK
     Route: 042
     Dates: start: 202002
  3. FLECAINIDE [Concomitant]
     Active Substance: FLECAINIDE
     Indication: ATRIAL TACHYCARDIA
     Dosage: 50 MG, BID
     Route: 065
     Dates: start: 20200908
  4. DULOXETINE. [Concomitant]
     Active Substance: DULOXETINE
     Indication: NEUROPATHY PERIPHERAL
     Dosage: 30 MG
     Route: 065
     Dates: start: 201712

REACTIONS (3)
  - Dyspnoea [Unknown]
  - Atrial tachycardia [Unknown]
  - Anxiety [Unknown]

NARRATIVE: CASE EVENT DATE: 2020
